FAERS Safety Report 5324894-0 (Version None)
Quarter: 2007Q2

REPORT INFORMATION
  Report Type: 
  Country: None (occurrence: None)
  Receive Date: 20070510
  Receipt Date: 20070510
  Transmission Date: 20071010
  Serious: Yes (Other)
  Sender: FDA-Public Use
  Company Number: None

PATIENT
  Age: 16 Year
  Sex: Female

DRUGS (1)
  1. CONCERTA [Suspect]
     Dosage: 36 MG DAILY PO
     Route: 048
     Dates: start: 20070503, end: 20070504

REACTIONS (1)
  - TIC [None]
